FAERS Safety Report 22125980 (Version 1)
Quarter: 2023Q1

REPORT INFORMATION
  Report Type: Spontaneous
  Country: US (occurrence: US)
  Receive Date: 20230322
  Receipt Date: 20230322
  Transmission Date: 20230417
  Serious: No
  Sender: FDA-Public Use
  Company Number: US-ALLERGAN-2211233US

PATIENT
  Age: 88 Year
  Sex: Female
  Weight: 52.154 kg

DRUGS (7)
  1. LUMIGAN [Suspect]
     Active Substance: BIMATOPROST
     Indication: Intraocular pressure increased
     Dosage: 2 GTT, QHS
     Route: 047
     Dates: start: 20220225, end: 20220228
  2. REFRESH CELLUVISC [Concomitant]
     Active Substance: CARBOXYMETHYLCELLULOSE SODIUM
     Indication: Product used for unknown indication
     Dosage: UNK UNK, PRN
  3. PATADAY [Concomitant]
     Active Substance: OLOPATADINE HYDROCHLORIDE
     Indication: Product used for unknown indication
     Route: 047
  4. SYSTANE (HYPROMELLOSE 2910 (4000 MPA.S)) [Concomitant]
     Active Substance: HYPROMELLOSE 2910 (4000 MPA.S)
     Indication: Product used for unknown indication
     Dosage: UNK UNK, PRN
     Route: 047
  5. UNSPECIFIED INGREDIENT [Concomitant]
     Active Substance: UNSPECIFIED INGREDIENT
     Indication: Fluid retention
  6. SYNTHROID [Concomitant]
     Active Substance: LEVOTHYROXINE SODIUM
     Indication: Product used for unknown indication
  7. MURO 128 [Concomitant]
     Active Substance: SODIUM CHLORIDE
     Indication: Product used for unknown indication
     Dosage: UNK, BID
     Route: 047

REACTIONS (1)
  - Dizziness [Recovering/Resolving]

NARRATIVE: CASE EVENT DATE: 20220301
